FAERS Safety Report 18318019 (Version 2)
Quarter: 2020Q4

REPORT INFORMATION
  Report Type: Spontaneous
  Country: US (occurrence: US)
  Receive Date: 20200928
  Receipt Date: 20201001
  Transmission Date: 20210113
  Serious: No
  Sender: FDA-Public Use
  Company Number: US-PFIZER INC-2020368087

PATIENT
  Age: 43 Year
  Sex: Male

DRUGS (2)
  1. XELJANZ [Suspect]
     Active Substance: TOFACITINIB CITRATE
     Indication: ALOPECIA
     Dosage: 5 MG, DAILY (INITIALLY 5MG DAILY, THEN WORKED UP TO 5MG BID (TWICE A DAY))
     Dates: start: 20200908
  2. XELJANZ [Suspect]
     Active Substance: TOFACITINIB CITRATE
     Indication: PSORIATIC ARTHROPATHY
     Dosage: 5 MG, 2X/DAY (INITIALLY 5MG DAILY, THEN WORKED UP TO 5MG BID (TWICE A DAY))

REACTIONS (7)
  - Abdominal discomfort [Unknown]
  - Discomfort [Unknown]
  - Diarrhoea [Unknown]
  - Constipation [Unknown]
  - Product use in unapproved indication [Unknown]
  - Off label use [Unknown]
  - Drug effective for unapproved indication [Unknown]

NARRATIVE: CASE EVENT DATE: 202009
